FAERS Safety Report 17453083 (Version 1)
Quarter: 2020Q1

REPORT INFORMATION
  Report Type: Spontaneous
  Country: US (occurrence: US)
  Receive Date: 20200224
  Receipt Date: 20200224
  Transmission Date: 20200409
  Serious: Yes (Hospitalization)
  Sender: FDA-Public Use
  Company Number: US-SAOL THERAPEUTICS-2020SAO00045

PATIENT
  Age: 69 Year
  Sex: Male

DRUGS (1)
  1. LIORESAL [Suspect]
     Active Substance: BACLOFEN
     Indication: MULTIPLE SCLEROSIS
     Dosage: 1800 ?G, \DAY
     Route: 037
     Dates: end: 20200211

REACTIONS (1)
  - Implant site discharge [Unknown]

NARRATIVE: CASE EVENT DATE: 20200211
